FAERS Safety Report 6706789-0 (Version None)
Quarter: 2010Q2

REPORT INFORMATION
  Report Type: 
  Country: None (occurrence: None)
  Receive Date: 20100503
  Receipt Date: 20100419
  Transmission Date: 20101027
  Serious: Yes (Death, Life-Threatening, Other)
  Sender: FDA-Public Use
  Company Number: JP-BAYER-200911415BYL

PATIENT
  Age: 79 Year
  Sex: Male
  Weight: 60 kg

DRUGS (7)
  1. NEXAVAR [Suspect]
     Indication: RENAL CELL CARCINOMA
     Dosage: UNIT DOSE: 200 MG
     Route: 048
     Dates: start: 20090413, end: 20090418
  2. NEXAVAR [Suspect]
     Dosage: UNIT DOSE: 200 MG
     Route: 048
     Dates: start: 20090419, end: 20090501
  3. NEXAVAR [Suspect]
     Dosage: UNIT DOSE: 200 MG
     Route: 048
     Dates: start: 20090513, end: 20090610
  4. SELEGILINE HCL [Concomitant]
     Indication: PARKINSON'S DISEASE
     Route: 048
     Dates: end: 20090618
  5. LEVODOPA [Concomitant]
     Indication: PARKINSON'S DISEASE
     Route: 048
  6. SYMMETREL [Concomitant]
     Route: 048
     Dates: end: 20090618
  7. EC-DOPARL [Concomitant]
     Route: 048
     Dates: end: 20090618

REACTIONS (4)
  - DECREASED APPETITE [None]
  - EATING DISORDER [None]
  - MELAENA [None]
  - NEUROLEPTIC MALIGNANT SYNDROME [None]
